FAERS Safety Report 23066062 (Version 2)
Quarter: 2023Q4

REPORT INFORMATION
  Report Type: Spontaneous
  Country: FR (occurrence: FR)
  Receive Date: 20231014
  Receipt Date: 20231021
  Transmission Date: 20240109
  Serious: Yes (Congenital Anomaly)
  Sender: FDA-Public Use
  Company Number: FR-TEVA-2023-FR-2933501

PATIENT
  Age: 44 Year
  Sex: Male

DRUGS (3)
  1. ARIPIPRAZOLE [Suspect]
     Active Substance: ARIPIPRAZOLE
     Indication: Tourette^s disorder
     Dosage: 2.5 MILLIGRAM DAILY;
     Dates: start: 20230926
  2. ARIPIPRAZOLE [Suspect]
     Active Substance: ARIPIPRAZOLE
     Dosage: 1.5 DOSAGE FORMS DAILY; 1 DOSAGE FORM IN MORNING AND 0.5MG EVENING
     Dates: start: 20231002
  3. PAROXETINE [Concomitant]
     Active Substance: PAROXETINE
     Indication: Depression
     Dates: start: 2022

REACTIONS (4)
  - Tourette^s disorder [Not Recovered/Not Resolved]
  - Blepharospasm [Recovered/Resolved]
  - Intentional product misuse [Unknown]
  - Wrong technique in product usage process [Unknown]

NARRATIVE: CASE EVENT DATE: 20230926
